FAERS Safety Report 17163121 (Version 1)
Quarter: 2019Q4

REPORT INFORMATION
  Report Type: Spontaneous
  Country: IL (occurrence: IL)
  Receive Date: 20191217
  Receipt Date: 20191217
  Transmission Date: 20200122
  Serious: Yes (Death, Other)
  Sender: FDA-Public Use
  Company Number: IL-009507513-1912ISR006454

PATIENT
  Sex: Male

DRUGS (2)
  1. DURVALUMAB. [Concomitant]
     Active Substance: DURVALUMAB
     Dosage: UNK
  2. KEYTRUDA [Suspect]
     Active Substance: PEMBROLIZUMAB
     Indication: LUNG CANCER METASTATIC
     Dosage: UNK

REACTIONS (1)
  - Death [Fatal]
